FAERS Safety Report 20236288 (Version 23)
Quarter: 2024Q2

REPORT INFORMATION
  Report Type: Spontaneous
  Country: GB (occurrence: GB)
  Receive Date: 20211228
  Receipt Date: 20240521
  Transmission Date: 20240716
  Serious: Yes (Other)
  Sender: FDA-Public Use
  Company Number: GB-BAXTER-2020BAX017657

PATIENT
  Age: 51 Year
  Sex: Male
  Weight: 53 kg

DRUGS (283)
  1. APREPITANT [Suspect]
     Active Substance: APREPITANT
     Indication: Supportive care
     Dosage: 125 MG,1 D
     Route: 065
     Dates: start: 20200825
  2. APREPITANT [Suspect]
     Active Substance: APREPITANT
     Indication: Mineral supplementation
     Dosage: 80 MILLIGRAM
     Route: 065
     Dates: start: 20200826
  3. APREPITANT [Suspect]
     Active Substance: APREPITANT
     Dosage: 80 MILLIGRAM
     Route: 065
     Dates: start: 20200825
  4. APREPITANT [Suspect]
     Active Substance: APREPITANT
     Dosage: 125 MG, (D1 (125 MG)/125 MG, 1X; IN TOTAL/D1)
     Route: 065
     Dates: start: 20200825
  5. APREPITANT [Suspect]
     Active Substance: APREPITANT
     Dosage: 125 MG, (D1 (125 MG)/125 MG, 1X; IN TOTAL/D1)
     Route: 065
     Dates: start: 20200825
  6. APREPITANT [Suspect]
     Active Substance: APREPITANT
     Dosage: 125 MG (125 MG (D1) SINGLE (D1 (125 MG)/125
     Route: 065
     Dates: start: 20200826
  7. APREPITANT [Suspect]
     Active Substance: APREPITANT
     Dosage: 80 MG, (D2) SINGLE (IN TOTAL)
     Route: 065
     Dates: start: 20200825
  8. APREPITANT [Suspect]
     Active Substance: APREPITANT
     Dosage: D1 (125 MG)
     Route: 065
  9. APREPITANT [Suspect]
     Active Substance: APREPITANT
     Dosage: 80 MG, (D2) SINGLE (IN TOTAL) (80 MG)
     Route: 065
     Dates: start: 20200826
  10. APREPITANT [Suspect]
     Active Substance: APREPITANT
     Dosage: 1 DOSE (UNIT SPECIFIED)/1 DOSAGE FORMS,1 D
     Route: 065
  11. APREPITANT [Suspect]
     Active Substance: APREPITANT
     Dosage: 80 MILLIGRAM
  12. APREPITANT [Suspect]
     Active Substance: APREPITANT
     Dosage: UNK UNK, QD
     Dates: start: 20200826
  13. APREPITANT [Suspect]
     Active Substance: APREPITANT
     Dosage: D2 (80 MG)
     Dates: start: 20200825
  14. APREPITANT [Suspect]
     Active Substance: APREPITANT
     Dosage: 80 MG,1 IN 1 D
     Dates: start: 20200826
  15. APREPITANT [Suspect]
     Active Substance: APREPITANT
     Dosage: 125 MG D2 (125 MG)
     Dates: start: 20200825
  16. APREPITANT [Suspect]
     Active Substance: APREPITANT
     Dosage: 1 DOSAGE FORM
     Dates: start: 20200826
  17. APREPITANT [Suspect]
     Active Substance: APREPITANT
     Dosage: 80 MILLIGRAM
     Route: 065
     Dates: start: 20200825
  18. APREPITANT [Suspect]
     Active Substance: APREPITANT
     Dosage: 125 MILLIGRAM, 1X
     Dates: start: 20200826
  19. ETORICOXIB [Suspect]
     Active Substance: ETORICOXIB
     Indication: Product used for unknown indication
     Dosage: 1 DOSAGE FORM, QD
  20. ETORICOXIB [Suspect]
     Active Substance: ETORICOXIB
     Dosage: UNK
     Route: 065
  21. SODIUM CHLORIDE [Suspect]
     Active Substance: SODIUM CHLORIDE
     Dosage: SODIUM CHLORIDE INTRAVENOUS INFUSION BP 0.9% W/V0.9%
     Route: 065
     Dates: start: 20200825, end: 20200825
  22. SODIUM CHLORIDE [Suspect]
     Active Substance: SODIUM CHLORIDE
     Dosage: 0.9 PERCENT
     Route: 065
     Dates: start: 20200825, end: 20200825
  23. SODIUM CHLORIDE [Suspect]
     Active Substance: SODIUM CHLORIDE
     Dosage: 0.9 PERCENT
     Route: 065
     Dates: start: 20200825, end: 20200825
  24. SODIUM CHLORIDE [Suspect]
     Active Substance: SODIUM CHLORIDE
     Dosage: UNK
     Dates: start: 20200825, end: 20200825
  25. SODIUM CHLORIDE [Suspect]
     Active Substance: SODIUM CHLORIDE
     Dosage: 0.9 PERCENT
     Route: 065
     Dates: start: 20200825, end: 20200825
  26. SODIUM CHLORIDE [Suspect]
     Active Substance: SODIUM CHLORIDE
     Dosage: 0.9 %
     Route: 065
     Dates: start: 20200825, end: 20200825
  27. SODIUM CHLORIDE [Suspect]
     Active Substance: SODIUM CHLORIDE
     Dosage: 0.9 PERCENT
     Route: 042
     Dates: start: 20200825, end: 20200825
  28. SODIUM CHLORIDE [Suspect]
     Active Substance: SODIUM CHLORIDE
     Dosage: UNK
     Route: 065
     Dates: start: 20200825, end: 20200825
  29. ONDANSETRON [Suspect]
     Active Substance: ONDANSETRON
     Indication: Supportive care
     Dosage: 16 MILLIGRAM, QD (16 MG,1 D) ORODISPERSIBLE FILM
     Route: 048
     Dates: start: 20200825
  30. NAUZELIN [Suspect]
     Active Substance: DOMPERIDONE
     Indication: Supportive care
     Dosage: 30 MILLIGRAM, QD
     Route: 048
     Dates: start: 20200825
  31. NAUZELIN [Suspect]
     Active Substance: DOMPERIDONE
     Dosage: 8 MILLIGRAM, QD
     Route: 065
     Dates: start: 20200825
  32. NAUZELIN [Suspect]
     Active Substance: DOMPERIDONE
     Dosage: 8 MG, QD (8 MG,1 D)
     Route: 048
     Dates: start: 20200825
  33. NAUZELIN [Suspect]
     Active Substance: DOMPERIDONE
     Dosage: 30 MG, 1D (QD) (AS NECESSARY)
     Route: 048
     Dates: start: 20210825
  34. NAUZELIN [Suspect]
     Active Substance: DOMPERIDONE
     Dosage: 8 MG,QD
     Route: 048
     Dates: start: 20200825
  35. NAUZELIN [Suspect]
     Active Substance: DOMPERIDONE
     Dosage: 30 MILLIGRAM, QD (30 MG, QD (PRN (30 MG,1 D))
     Route: 048
     Dates: start: 20200825
  36. NAUZELIN [Suspect]
     Active Substance: DOMPERIDONE
     Dosage: 30 MILLIGRAM, QD
     Route: 048
     Dates: start: 20200825
  37. NAUZELIN [Suspect]
     Active Substance: DOMPERIDONE
     Dosage: UNK
  38. NAUZELIN [Suspect]
     Active Substance: DOMPERIDONE
     Dosage: 8 DOSAGE FORM
     Dates: start: 20200825
  39. CISPLATIN [Suspect]
     Active Substance: CISPLATIN
     Indication: Germ cell neoplasm
     Dosage: 79 MG,IN 1 LITER (NOT SPECIFIED) (79 MG)
     Route: 065
     Dates: start: 20200825
  40. DEXAMETHASONE [Suspect]
     Active Substance: DEXAMETHASONE
     Indication: Supportive care
     Dosage: 8 MG, QD(8 MG, 1X/DAY ) (8 MG,1 D)
     Route: 048
     Dates: start: 20200825
  41. DEXAMETHASONE [Suspect]
     Active Substance: DEXAMETHASONE
     Dosage: 8 MG, QD(8MILLIGRAM, QD )
     Route: 048
     Dates: start: 20200825
  42. DEXAMETHASONE [Suspect]
     Active Substance: DEXAMETHASONE
     Dosage: 30 MG, QD (30 MG,1 D)
     Route: 048
     Dates: start: 20200825
  43. DEXAMETHASONE [Suspect]
     Active Substance: DEXAMETHASONE
     Dosage: 30 MG (30 MG,1 IN 1 D)UNK
  44. DEXAMETHASONE [Suspect]
     Active Substance: DEXAMETHASONE
     Dosage: 30 MG, QD, 30 MG, QD (PRN (30 MG,1 D))
     Route: 048
     Dates: start: 20200825
  45. DEXAMETHASONE [Suspect]
     Active Substance: DEXAMETHASONE
     Dosage: 30 MILLIGRAM DOSE REDUCE
  46. CALCIUM [Suspect]
     Active Substance: CALCIUM
     Indication: Mineral supplementation
     Dosage: UNK
     Route: 065
  47. CALCIUM [Suspect]
     Active Substance: CALCIUM
     Indication: Nutritional supplementation
     Dosage: UNK UNK, QD
     Route: 065
  48. CALCIUM [Suspect]
     Active Substance: CALCIUM
     Dosage: UNK UNK, QD
     Route: 065
  49. CALCIUM [Suspect]
     Active Substance: CALCIUM
     Dosage: UNK UNK, QD
     Route: 065
  50. CALCIUM [Suspect]
     Active Substance: CALCIUM
     Dosage: UNK UNK, QD
     Route: 065
  51. CALCIUM [Suspect]
     Active Substance: CALCIUM
     Dosage: UNK UNK, QD
     Route: 065
  52. CALCIUM [Suspect]
     Active Substance: CALCIUM
     Dosage: UNK UNK, QD
     Route: 065
  53. CALCIUM [Suspect]
     Active Substance: CALCIUM
     Dosage: UNK UNK, QD
     Route: 065
  54. CALCIUM [Suspect]
     Active Substance: CALCIUM
     Dosage: UNK UNK, QD
     Route: 065
  55. CALCIUM [Suspect]
     Active Substance: CALCIUM
     Dosage: 1 DOSAGE FORM, QD
     Route: 048
  56. CALCIUM [Suspect]
     Active Substance: CALCIUM
     Dosage: UNK UNK, QD
     Route: 048
  57. CALCIUM [Suspect]
     Active Substance: CALCIUM
     Dosage: UNK UNK, QD
     Route: 065
  58. CALCIUM [Suspect]
     Active Substance: CALCIUM
     Dosage: 1 DOSAGE FORM, QD
     Route: 048
  59. CALCIUM [Suspect]
     Active Substance: CALCIUM
     Dosage: UNK UNK, QD
     Route: 065
  60. CALCIUM [Suspect]
     Active Substance: CALCIUM
     Dosage: 1 DOSAGE FORM, QD
     Route: 065
  61. CALCIUM [Suspect]
     Active Substance: CALCIUM
     Dosage: 1 DOSAGE FORM, QD
     Route: 065
  62. CALCIUM [Suspect]
     Active Substance: CALCIUM
     Dosage: UNK UNK, QD
     Route: 065
  63. CALCIUM [Suspect]
     Active Substance: CALCIUM
     Dosage: UNK UNK, QD
     Route: 065
  64. CALCIUM [Suspect]
     Active Substance: CALCIUM
     Dosage: 1 DOSAGE FORM, QD
  65. CALCIUM [Suspect]
     Active Substance: CALCIUM
     Dosage: 2 DF, QD
     Route: 065
  66. CALCIUM [Suspect]
     Active Substance: CALCIUM
     Dosage: 8 DOSAGE FORM, QD
     Route: 048
  67. CALCIUM [Suspect]
     Active Substance: CALCIUM
     Dosage: UNK
     Route: 048
  68. CALCIUM [Suspect]
     Active Substance: CALCIUM
     Dosage: 8 DOSAGE FORM, QD
  69. CALCIUM [Suspect]
     Active Substance: CALCIUM
     Dosage: 2 DOSAGE FORM, QD
  70. TRIBASIC CALCIUM PHOSPHATE [Suspect]
     Active Substance: TRIBASIC CALCIUM PHOSPHATE
     Indication: Mineral supplementation
     Dosage: UNK
     Route: 065
  71. DOMPERIDONE [Suspect]
     Active Substance: DOMPERIDONE
     Indication: Supportive care
     Dosage: UNK
     Route: 065
     Dates: start: 20200825
  72. DOMPERIDONE [Suspect]
     Active Substance: DOMPERIDONE
     Dosage: 8 MILLIGRAM, QD
     Route: 048
     Dates: start: 20200825
  73. DOMPERIDONE [Suspect]
     Active Substance: DOMPERIDONE
     Dosage: 30 MILLIGRAM, QD
     Route: 048
     Dates: start: 20200825
  74. DOMPERIDONE [Suspect]
     Active Substance: DOMPERIDONE
     Dosage: 8 MG, QD (8 MG,1 D)UNK
  75. DOMPERIDONE [Suspect]
     Active Substance: DOMPERIDONE
     Dosage: 30 MG, PRN
     Route: 048
     Dates: start: 20200825
  76. DOMPERIDONE [Suspect]
     Active Substance: DOMPERIDONE
     Dosage: 8 MILLIGRAM, QD
     Route: 048
     Dates: start: 20200925
  77. DOMPERIDONE [Suspect]
     Active Substance: DOMPERIDONE
     Dosage: UNK
  78. DOMPERIDONE [Suspect]
     Active Substance: DOMPERIDONE
     Dosage: 30 MILLIGRAM, QD (PRN (30 MG 1 D)
     Route: 048
     Dates: start: 20200825
  79. DOMPERIDONE [Suspect]
     Active Substance: DOMPERIDONE
     Dosage: 8 MILLIGRAM, QD
     Route: 048
  80. UNSPECIFIED INGREDIENT [Suspect]
     Active Substance: UNSPECIFIED INGREDIENT
     Indication: Nutritional supplementation
     Dosage: UNK UNK, QD
     Route: 065
  81. UNSPECIFIED INGREDIENT [Suspect]
     Active Substance: UNSPECIFIED INGREDIENT
     Dosage: UNK UNK, QD
     Route: 065
  82. UNSPECIFIED INGREDIENT [Suspect]
     Active Substance: UNSPECIFIED INGREDIENT
     Dosage: UNK UNK, QD
     Route: 065
  83. UNSPECIFIED INGREDIENT [Suspect]
     Active Substance: UNSPECIFIED INGREDIENT
     Dosage: UNK
     Route: 065
  84. UNSPECIFIED INGREDIENT [Suspect]
     Active Substance: UNSPECIFIED INGREDIENT
     Dosage: UNK
     Route: 065
  85. UNSPECIFIED INGREDIENT [Suspect]
     Active Substance: UNSPECIFIED INGREDIENT
     Dosage: UNK UNK, QD
     Route: 065
  86. UNSPECIFIED INGREDIENT [Suspect]
     Active Substance: UNSPECIFIED INGREDIENT
     Dosage: UNK UNK, QD
     Route: 065
  87. UNSPECIFIED INGREDIENT [Suspect]
     Active Substance: UNSPECIFIED INGREDIENT
     Dosage: 3 DF
  88. UNSPECIFIED INGREDIENT [Suspect]
     Active Substance: UNSPECIFIED INGREDIENT
     Dosage: 1DF (1 DOSAGE FORMS
  89. UNSPECIFIED INGREDIENT [Suspect]
     Active Substance: UNSPECIFIED INGREDIENT
     Dosage: 1 DOSAGE FORMS,1 IN 1 D
  90. UNSPECIFIED INGREDIENT [Suspect]
     Active Substance: UNSPECIFIED INGREDIENT
     Dosage: 1 DF, QD
  91. UNSPECIFIED INGREDIENT [Suspect]
     Active Substance: UNSPECIFIED INGREDIENT
     Dosage: 1 TABLETS, QD
  92. UNSPECIFIED INGREDIENT [Suspect]
     Active Substance: UNSPECIFIED INGREDIENT
     Dosage: 3 TABLETS, QD
  93. UNSPECIFIED INGREDIENT [Suspect]
     Active Substance: UNSPECIFIED INGREDIENT
     Dosage: 3 TABLETS
  94. UNSPECIFIED INGREDIENT [Suspect]
     Active Substance: UNSPECIFIED INGREDIENT
     Dosage: 1 DOSAGE FORM, QD
  95. ETOPOSIDE [Suspect]
     Active Substance: ETOPOSIDE
     Indication: Germ cell neoplasm
     Dosage: UNK
     Route: 065
     Dates: start: 202007
  96. ETOPOSIDE [Suspect]
     Active Substance: ETOPOSIDE
     Dosage: 360 MILLIGRAM, QD (IN 1 LITER 2 BAGS (360 MG))
     Route: 065
     Dates: start: 20200825, end: 20200825
  97. ETOPOSIDE [Suspect]
     Active Substance: ETOPOSIDE
     Dosage: 360 MILLIGRAM;, IN 1 LITER 2 BAGS (360 MG)
     Route: 065
     Dates: start: 20200825, end: 20200825
  98. ETOPOSIDE [Suspect]
     Active Substance: ETOPOSIDE
     Dosage: UNK
     Route: 065
     Dates: start: 202007
  99. ETOPOSIDE [Suspect]
     Active Substance: ETOPOSIDE
     Dosage: 360 MILLIGRAM
     Route: 065
     Dates: start: 20200825, end: 20200825
  100. ETOPOSIDE [Suspect]
     Active Substance: ETOPOSIDE
     Dosage: 360 MG
     Dates: start: 202007
  101. NICOTINE [Suspect]
     Active Substance: NICOTINE
     Indication: Drug therapy
     Dosage: 21 MILLIGRAM, ONCE A DAY (PATCH, EVERY 24 HOURS)
     Route: 065
  102. NICOTINE [Suspect]
     Active Substance: NICOTINE
     Dosage: 21 MG, QD, PATCH, EVERY 24 HOURS (21 MG,1 D)
     Route: 065
  103. NICOTINE [Suspect]
     Active Substance: NICOTINE
     Dosage: 21 MG;
     Route: 065
  104. NICOTINE [Suspect]
     Active Substance: NICOTINE
     Dosage: UNK
  105. PHENYLBUTAZONE [Suspect]
     Active Substance: PHENYLBUTAZONE
     Indication: Hypovitaminosis
     Dosage: 300 MG, QD
     Route: 065
  106. PHENYLBUTAZONE [Suspect]
     Active Substance: PHENYLBUTAZONE
     Dosage: 300 MG, QD
     Route: 065
  107. PHENYLBUTAZONE [Suspect]
     Active Substance: PHENYLBUTAZONE
     Dosage: 300 MG, QD
     Route: 065
  108. PROPYPHENAZONE [Suspect]
     Active Substance: PROPYPHENAZONE
     Indication: Hypovitaminosis
     Dosage: 300 MG, QD
     Route: 065
  109. PROPYPHENAZONE [Suspect]
     Active Substance: PROPYPHENAZONE
     Dosage: 300 MG, QD
     Route: 065
  110. PROPYPHENAZONE [Suspect]
     Active Substance: PROPYPHENAZONE
     Dosage: 300 MG, QD
     Route: 065
  111. PROPYPHENAZONE [Suspect]
     Active Substance: PROPYPHENAZONE
     Dosage: 300 MILLIGRAM, QD
  112. THIAMINE [Suspect]
     Active Substance: THIAMINE
     Indication: Hypovitaminosis
     Dosage: 300 MILLIGRAM, QD
     Route: 065
  113. THIAMINE [Suspect]
     Active Substance: THIAMINE
     Dosage: UNK
     Route: 065
  114. THIAMINE [Suspect]
     Active Substance: THIAMINE
     Dosage: 300 MILLIGRAM, QD
     Route: 065
  115. THIAMINE [Suspect]
     Active Substance: THIAMINE
     Dosage: 300 MG, QD
     Route: 065
  116. THIAMINE [Suspect]
     Active Substance: THIAMINE
     Dosage: UNK UNK, QD
     Route: 065
  117. THIAMINE [Suspect]
     Active Substance: THIAMINE
     Dosage: UNK
     Route: 065
  118. THIAMINE [Suspect]
     Active Substance: THIAMINE
     Dosage: 1 DF, QD, UNK, UNK, QD (1 DOSAGE FORMS,1 IN 1 D)
  119. THIAMINE HYDROCHLORIDE [Suspect]
     Active Substance: THIAMINE HYDROCHLORIDE
     Indication: Nutritional supplementation
     Dosage: 300 MILLIGRAM, QD
     Route: 065
  120. THIAMINE HYDROCHLORIDE [Suspect]
     Active Substance: THIAMINE HYDROCHLORIDE
     Indication: Hypovitaminosis
     Dosage: 300 MG, QD
     Route: 065
  121. THIAMINE HYDROCHLORIDE [Suspect]
     Active Substance: THIAMINE HYDROCHLORIDE
     Dosage: UNK UNK, QD
     Route: 065
  122. THIAMINE HYDROCHLORIDE [Suspect]
     Active Substance: THIAMINE HYDROCHLORIDE
     Dosage: 1 DOSAGE FORMS (1 DOSAGE FORMS,1 IN 1 D)
  123. THIAMINE MONONITRATE [Suspect]
     Active Substance: THIAMINE MONONITRATE
     Indication: Hypovitaminosis
     Dosage: 300 MILLIGRAM, QD
     Route: 065
  124. THIAMINE MONONITRATE [Suspect]
     Active Substance: THIAMINE MONONITRATE
     Dosage: UNK
     Route: 065
  125. THIAMINE MONONITRATE [Suspect]
     Active Substance: THIAMINE MONONITRATE
     Dosage: 300 MILLIGRAM, QD/300 MG,1 D
     Route: 065
  126. THIAMINE MONONITRATE [Suspect]
     Active Substance: THIAMINE MONONITRATE
     Indication: Hypovitaminosis
     Dosage: 300 MILLIGRAM, QD
     Route: 065
  127. THIAMINE MONONITRATE [Suspect]
     Active Substance: THIAMINE MONONITRATE
     Dosage: 300 MILLIGRAM, QD
     Route: 065
  128. ENSURE [Suspect]
     Active Substance: AMINO ACIDS\DEXTROSE\ELECTROLYTES NOS\SOYBEAN OIL\VITAMINS
     Indication: Nutritional supplementation
     Dosage: 1 DOSAGE FORM, QD
     Route: 065
  129. ENSURE [Suspect]
     Active Substance: AMINO ACIDS\DEXTROSE\ELECTROLYTES NOS\SOYBEAN OIL\VITAMINS
     Dosage: TABLETS (1 D); 1DF
     Route: 065
  130. ENSURE [Suspect]
     Active Substance: AMINO ACIDS\DEXTROSE\ELECTROLYTES NOS\SOYBEAN OIL\VITAMINS
     Dosage: 3 TABLETS
     Route: 065
  131. ENSURE [Suspect]
     Active Substance: AMINO ACIDS\DEXTROSE\ELECTROLYTES NOS\SOYBEAN OIL\VITAMINS
     Dosage: 1 DF
     Route: 065
  132. ENSURE [Suspect]
     Active Substance: AMINO ACIDS\DEXTROSE\ELECTROLYTES NOS\SOYBEAN OIL\VITAMINS
     Dosage: 3 TABLETS, QD
  133. ENSURE [Suspect]
     Active Substance: AMINO ACIDS\DEXTROSE\ELECTROLYTES NOS\SOYBEAN OIL\VITAMINS
     Dosage: 1 TABLETS, QD
     Route: 065
  134. ENSURE [Suspect]
     Active Substance: AMINO ACIDS\DEXTROSE\ELECTROLYTES NOS\SOYBEAN OIL\VITAMINS
     Dosage: 1 DOSAGE FORM, QD
     Route: 065
  135. ENSURE [Suspect]
     Active Substance: AMINO ACIDS\DEXTROSE\ELECTROLYTES NOS\SOYBEAN OIL\VITAMINS
     Dosage: 1 DF, QD
     Route: 065
  136. ENSURE [Suspect]
     Active Substance: AMINO ACIDS\DEXTROSE\ELECTROLYTES NOS\SOYBEAN OIL\VITAMINS
     Dosage: 1 TABLET, QD
     Route: 065
  137. ENSURE [Suspect]
     Active Substance: AMINO ACIDS\DEXTROSE\ELECTROLYTES NOS\SOYBEAN OIL\VITAMINS
     Dosage: 3 DF
     Route: 065
  138. CALCIUM\VITAMIN D [Suspect]
     Active Substance: CALCIUM\VITAMIN D
     Indication: Mineral supplementation
     Dosage: 1 DOSAGE FORM, QD
     Route: 065
  139. CALCIUM\VITAMIN D [Suspect]
     Active Substance: CALCIUM\VITAMIN D
     Dosage: 8 DF, QD
     Route: 065
  140. CALCIUM\VITAMIN D [Suspect]
     Active Substance: CALCIUM\VITAMIN D
     Dosage: 2 DF, QD
     Route: 065
  141. CALCIUM\VITAMIN D [Suspect]
     Active Substance: CALCIUM\VITAMIN D
     Dosage: 1 UNK, QD
     Route: 065
  142. CALCIUM\VITAMIN D [Suspect]
     Active Substance: CALCIUM\VITAMIN D
     Dosage: 1 DF
     Route: 065
  143. CALCIUM\VITAMIN D [Suspect]
     Active Substance: CALCIUM\VITAMIN D
     Dosage: UNK, QD
     Route: 065
  144. CALCIUM\VITAMIN D [Suspect]
     Active Substance: CALCIUM\VITAMIN D
     Dosage: UNK
  145. CALCIUM\VITAMIN D [Suspect]
     Active Substance: CALCIUM\VITAMIN D
     Dosage: 8 DOSAGE FORM, QD
  146. CALCIUM\VITAMIN D [Suspect]
     Active Substance: CALCIUM\VITAMIN D
     Dosage: 2 DOSAGE FORM, QD
  147. CALCIUM\VITAMIN D [Suspect]
     Active Substance: CALCIUM\VITAMIN D
     Dosage: UNK, QD
  148. CALCIUM\VITAMIN D [Suspect]
     Active Substance: CALCIUM\VITAMIN D
     Dosage: 8 DOSAGE FORM, QD
  149. CHOLECALCIFEROL [Suspect]
     Active Substance: CHOLECALCIFEROL
     Indication: Mineral supplementation
     Dosage: 2 DOSAGE FORM, QD (TABLET 2 UNK)
     Route: 065
  150. CHOLECALCIFEROL [Suspect]
     Active Substance: CHOLECALCIFEROL
     Indication: Mineral supplementation
     Dosage: 1 DF, QD
     Route: 065
  151. CHOLECALCIFEROL [Suspect]
     Active Substance: CHOLECALCIFEROL
     Dosage: 8 DF, QD
     Route: 065
  152. CHOLECALCIFEROL [Suspect]
     Active Substance: CHOLECALCIFEROL
     Dosage: 1 DF, QD,
     Route: 065
  153. CHOLECALCIFEROL [Suspect]
     Active Substance: CHOLECALCIFEROL
     Dosage: UNK UNK, QD
     Route: 065
  154. CHOLECALCIFEROL [Suspect]
     Active Substance: CHOLECALCIFEROL
     Dosage: UNK
     Route: 065
  155. CHOLECALCIFEROL [Suspect]
     Active Substance: CHOLECALCIFEROL
     Dosage: 8 DF, QD
  156. CHOLECALCIFEROL [Suspect]
     Active Substance: CHOLECALCIFEROL
     Dosage: 8 DF, QD
     Route: 065
  157. CHOLECALCIFEROL [Suspect]
     Active Substance: CHOLECALCIFEROL
     Dosage: 1 DF, QD
     Route: 065
  158. CHOLECALCIFEROL [Suspect]
     Active Substance: CHOLECALCIFEROL
     Dosage: DOSE: 1 (UNSPECIFIED UNIT)
     Route: 065
  159. CHOLECALCIFEROL [Suspect]
     Active Substance: CHOLECALCIFEROL
     Dosage: 1 DOSAGE FORM, QD
     Route: 065
  160. CHOLECALCIFEROL [Suspect]
     Active Substance: CHOLECALCIFEROL
     Dosage: TABLET(1D) / UNK, QD (TABLET(1D))
     Route: 065
  161. CHOLECALCIFEROL [Suspect]
     Active Substance: CHOLECALCIFEROL
     Dosage: UNK UNK, QD
     Route: 065
  162. CHOLECALCIFEROL [Suspect]
     Active Substance: CHOLECALCIFEROL
     Dosage: 8 DF, QD
     Route: 065
  163. CHOLECALCIFEROL [Suspect]
     Active Substance: CHOLECALCIFEROL
     Dosage: UNK DF, QD
     Route: 065
  164. CHOLECALCIFEROL [Suspect]
     Active Substance: CHOLECALCIFEROL
     Dosage: 1 DOSAGE FORM, QD
     Route: 065
  165. CHOLECALCIFEROL [Suspect]
     Active Substance: CHOLECALCIFEROL
     Dosage: UNK
     Route: 065
  166. CHOLECALCIFEROL [Suspect]
     Active Substance: CHOLECALCIFEROL
     Dosage: 1 DF, QD
     Route: 065
  167. CHOLECALCIFEROL [Suspect]
     Active Substance: CHOLECALCIFEROL
     Dosage: 8 DF, QD
     Route: 065
  168. CHOLECALCIFEROL [Suspect]
     Active Substance: CHOLECALCIFEROL
     Dosage: DOSE: 1 (UNSPECIFIED UNIT)
     Route: 065
  169. CHOLECALCIFEROL [Suspect]
     Active Substance: CHOLECALCIFEROL
     Dosage: 1 DF
     Route: 065
  170. CHOLECALCIFEROL [Suspect]
     Active Substance: CHOLECALCIFEROL
     Dosage: TABLET(1D) / UNK, QD (TABLET(1D))
     Route: 065
  171. CHOLECALCIFEROL [Suspect]
     Active Substance: CHOLECALCIFEROL
     Dosage: 8 DF, QD
     Route: 065
  172. CHOLECALCIFEROL [Suspect]
     Active Substance: CHOLECALCIFEROL
     Dosage: UNK DF, QD
     Route: 065
  173. CHOLECALCIFEROL [Suspect]
     Active Substance: CHOLECALCIFEROL
     Dosage: 1 DF, QD
     Route: 065
  174. CHOLECALCIFEROL [Suspect]
     Active Substance: CHOLECALCIFEROL
     Dosage: UNK UNK, QD
     Route: 065
  175. CHOLECALCIFEROL [Suspect]
     Active Substance: CHOLECALCIFEROL
     Dosage: 1 DF, QD, (QD(UNK, QD, (UNK UNK, QD) )
     Route: 065
  176. CHOLECALCIFEROL [Suspect]
     Active Substance: CHOLECALCIFEROL
     Dosage: 1 DF, QD, (QD(UNK, QD, (UNK UNK, QD) )
     Route: 065
  177. CHOLECALCIFEROL [Suspect]
     Active Substance: CHOLECALCIFEROL
     Dosage: 8 DF, QD
     Route: 065
  178. CHOLECALCIFEROL [Suspect]
     Active Substance: CHOLECALCIFEROL
     Dosage: 8 DF, QD
     Route: 065
  179. CHOLECALCIFEROL [Suspect]
     Active Substance: CHOLECALCIFEROL
     Dosage: 2 DF, QD
     Route: 065
  180. CHOLECALCIFEROL [Suspect]
     Active Substance: CHOLECALCIFEROL
     Dosage: 1 DOSAGE FORM
  181. CHOLECALCIFEROL [Suspect]
     Active Substance: CHOLECALCIFEROL
     Dosage: 8 DOSAGE FORM
  182. CHOLECALCIFEROL [Suspect]
     Active Substance: CHOLECALCIFEROL
     Dosage: 1 DOSAGE FORM
  183. CHOLECALCIFEROL [Suspect]
     Active Substance: CHOLECALCIFEROL
     Dosage: 1 DOSAGE FORM
  184. CHOLECALCIFEROL [Suspect]
     Active Substance: CHOLECALCIFEROL
     Dosage: 1 UNK, QD
     Route: 065
  185. CHOLECALCIFEROL [Suspect]
     Active Substance: CHOLECALCIFEROL
     Dosage: 1 DF, QD
     Route: 065
  186. CHOLECALCIFEROL [Suspect]
     Active Substance: CHOLECALCIFEROL
     Dosage: 8 DF, QD
     Route: 065
  187. CHOLECALCIFEROL [Suspect]
     Active Substance: CHOLECALCIFEROL
     Dosage: 8 DF, QD
     Route: 065
  188. CHOLECALCIFEROL [Suspect]
     Active Substance: CHOLECALCIFEROL
     Dosage: DOSE: 1 (UNSPECIFIED UNIT)
     Route: 065
  189. CHOLECALCIFEROL [Suspect]
     Active Substance: CHOLECALCIFEROL
     Dosage: UNK
     Route: 065
  190. CHOLECALCIFEROL [Suspect]
     Active Substance: CHOLECALCIFEROL
     Dosage: 1 DF, QD, (ALSO REPORTED AS UNK UNK, QD)
     Route: 065
  191. CHOLECALCIFEROL [Suspect]
     Active Substance: CHOLECALCIFEROL
     Dosage: 1 DOSAGE FORM
     Route: 065
  192. CHOLECALCIFEROL [Suspect]
     Active Substance: CHOLECALCIFEROL
     Dosage: 1 DF, QD
     Route: 065
  193. CHOLECALCIFEROL [Suspect]
     Active Substance: CHOLECALCIFEROL
     Dosage: 8 DF, QD
     Route: 065
  194. CHOLECALCIFEROL [Suspect]
     Active Substance: CHOLECALCIFEROL
     Dosage: 8 DOSAGE FORM, QD
     Route: 065
  195. CHOLECALCIFEROL [Suspect]
     Active Substance: CHOLECALCIFEROL
     Dosage: UNK UNK, QD
     Route: 065
  196. CHOLECALCIFEROL [Suspect]
     Active Substance: CHOLECALCIFEROL
     Dosage: 1 DF, QD, (ALSO REPORTED AS UNK, QD, (UNK UNK, QD)
     Route: 065
  197. CHOLECALCIFEROL [Suspect]
     Active Substance: CHOLECALCIFEROL
     Dosage: 2 DF, QD, (2 DOSAGE FORM, QD (TABLET 2 UNK))
     Route: 065
  198. CHOLECALCIFEROL [Suspect]
     Active Substance: CHOLECALCIFEROL
     Dosage: 1 DOSAGE FORM, QD (ALSO REPORTED AS TABLET(1D) / UNK, QD (TABLET(1D))
     Route: 065
  199. CHOLECALCIFEROL [Suspect]
     Active Substance: CHOLECALCIFEROL
     Dosage: UNK DFQD
     Route: 065
  200. CHOLECALCIFEROL [Suspect]
     Active Substance: CHOLECALCIFEROL
     Dosage: UNK UNK, QD;
     Route: 065
  201. CHOLECALCIFEROL [Suspect]
     Active Substance: CHOLECALCIFEROL
     Dosage: UNK UNK, QD;
     Route: 065
  202. CHOLECALCIFEROL [Suspect]
     Active Substance: CHOLECALCIFEROL
     Dosage: UNK UNK, QD;
     Route: 065
  203. CHOLECALCIFEROL [Suspect]
     Active Substance: CHOLECALCIFEROL
     Dosage: UNK; ;
     Route: 065
  204. CHOLECALCIFEROL [Suspect]
     Active Substance: CHOLECALCIFEROL
     Dosage: 1 DF, QD
     Route: 065
  205. CHOLECALCIFEROL [Suspect]
     Active Substance: CHOLECALCIFEROL
     Dosage: UNK UNK, QD;
     Route: 065
  206. CHOLECALCIFEROL [Suspect]
     Active Substance: CHOLECALCIFEROL
     Dosage: 8 DF, QD
     Route: 065
  207. CHOLECALCIFEROL [Suspect]
     Active Substance: CHOLECALCIFEROL
     Dosage: 1 DF, QD, (QD(UNK, QD, (UNK UNK, QD) )
     Route: 065
  208. CHOLECALCIFEROL [Suspect]
     Active Substance: CHOLECALCIFEROL
     Dosage: UNK UNK, QD;
     Route: 065
  209. CHOLECALCIFEROL [Suspect]
     Active Substance: CHOLECALCIFEROL
     Dosage: UNK UNK, QD;
     Route: 065
  210. CHOLECALCIFEROL [Suspect]
     Active Substance: CHOLECALCIFEROL
     Dosage: UNK UNK, QD;
     Route: 065
  211. CHOLECALCIFEROL [Suspect]
     Active Substance: CHOLECALCIFEROL
     Dosage: UNK; ;
     Route: 048
  212. CHOLECALCIFEROL [Suspect]
     Active Substance: CHOLECALCIFEROL
     Dosage: 1 DF, QD, (QD(UNK, QD, (UNK UNK, QD) )
     Route: 065
  213. CHOLECALCIFEROL [Suspect]
     Active Substance: CHOLECALCIFEROL
     Dosage: UNK UNK, QD;
     Route: 065
  214. CHOLECALCIFEROL [Suspect]
     Active Substance: CHOLECALCIFEROL
     Dosage: UNK UNK, QD;
     Route: 065
  215. CHOLECALCIFEROL [Suspect]
     Active Substance: CHOLECALCIFEROL
     Dosage: UNK UNK, QD;
     Route: 065
  216. CHOLECALCIFEROL [Suspect]
     Active Substance: CHOLECALCIFEROL
     Dosage: UNK UNK, QD;
     Route: 065
  217. CHOLECALCIFEROL [Suspect]
     Active Substance: CHOLECALCIFEROL
     Dosage: UNK; ;
     Route: 048
  218. CHOLECALCIFEROL [Suspect]
     Active Substance: CHOLECALCIFEROL
     Dosage: UNK UNK, QD;
     Route: 065
  219. CALCIUM CARBONATE [Suspect]
     Active Substance: CALCIUM CARBONATE
     Indication: Mineral supplementation
     Dosage: UNK UNK, QD
  220. CALCIUM CARBONATE [Suspect]
     Active Substance: CALCIUM CARBONATE
     Dosage: UNK
  221. CALCIUM CARBONATE [Suspect]
     Active Substance: CALCIUM CARBONATE
     Dosage: 8 DOSAGE FORM, QD
  222. CALCIUM CARBONATE [Suspect]
     Active Substance: CALCIUM CARBONATE
     Dosage: 2 DOSAGE FORM, QD
  223. CALCIUM CARBONATE [Suspect]
     Active Substance: CALCIUM CARBONATE
     Dosage: 1 UNK
     Route: 065
  224. CALCIUM CARBONATE\CHOLECALCIFEROL [Suspect]
     Active Substance: CALCIUM CARBONATE\CHOLECALCIFEROL
     Indication: Mineral supplementation
     Dosage: 1 DF
     Route: 065
  225. CALCIUM CARBONATE\CHOLECALCIFEROL [Suspect]
     Active Substance: CALCIUM CARBONATE\CHOLECALCIFEROL
     Dosage: 2 DOSAGE FORM, QD
     Route: 065
  226. CALCIUM CARBONATE\CHOLECALCIFEROL [Suspect]
     Active Substance: CALCIUM CARBONATE\CHOLECALCIFEROL
     Dosage: 8 DOSAGE FORM, QD
     Route: 065
  227. CALCIUM CARBONATE\CHOLECALCIFEROL [Suspect]
     Active Substance: CALCIUM CARBONATE\CHOLECALCIFEROL
     Dosage: 2 DF
  228. CALCIUM CARBONATE\CHOLECALCIFEROL [Suspect]
     Active Substance: CALCIUM CARBONATE\CHOLECALCIFEROL
     Dosage: 8 DF
  229. COCODAMOL [Suspect]
     Active Substance: ACETAMINOPHEN\CODEINE PHOSPHATE
     Indication: Product used for unknown indication
     Dosage: UNK
     Route: 065
  230. COCODAMOL [Suspect]
     Active Substance: ACETAMINOPHEN\CODEINE PHOSPHATE
     Dosage: CODEINE PHOSPHATE + PARACETAMOL
     Route: 065
  231. NICOTINAMIDE [Suspect]
     Active Substance: NIACINAMIDE
     Indication: Product used for unknown indication
     Dosage: 1 DF, QD
  232. MAGNESIUM CHLORIDE [Suspect]
     Active Substance: MAGNESIUM CHLORIDE
     Indication: Product used for unknown indication
     Dosage: 1 DOSAGE FORM, ONCE A DAY
  233. PYRIDOXINE HYDROCHLORIDE [Suspect]
     Active Substance: PYRIDOXINE HYDROCHLORIDE
     Indication: Product used for unknown indication
     Dosage: 1 DF, QD
  234. RIBOFLAVIN [Suspect]
     Active Substance: RIBOFLAVIN
     Indication: Product used for unknown indication
     Dosage: 1 DF, QD
  235. POTASSIUM CITRATE [Suspect]
     Active Substance: POTASSIUM CITRATE
     Indication: Product used for unknown indication
     Dosage: 1 DF, QD
  236. POTASSIUM CITRATE [Suspect]
     Active Substance: POTASSIUM CITRATE
     Dosage: 1 DOSAGE FORM
  237. PHYTONADIONE [Suspect]
     Active Substance: PHYTONADIONE
     Indication: Product used for unknown indication
     Dosage: 1 DF, QD
  238. POTASSIUM IODIDE [Suspect]
     Active Substance: POTASSIUM IODIDE
     Indication: Product used for unknown indication
     Dosage: 1 DOSAGE FORMS,1 IN 1 D
  239. POTASSIUM IODIDE [Suspect]
     Active Substance: POTASSIUM IODIDE
     Dosage: 1 DOSAGE FORM
  240. VITAMIN A PALMITATE [Suspect]
     Active Substance: VITAMIN A PALMITATE
     Indication: Product used for unknown indication
     Dosage: 1 DF, QD
  241. LINOLEIC ACID [Suspect]
     Active Substance: LINOLEIC ACID
     Indication: Product used for unknown indication
     Dosage: 3 DOSAGE FORM
  242. ZINC SULFATE [Suspect]
     Active Substance: ZINC SULFATE
     Indication: Product used for unknown indication
     Dosage: 1 DF, QD
  243. .ALPHA.-TOCOPHEROL ACETATE [Suspect]
     Active Substance: .ALPHA.-TOCOPHEROL ACETATE
     Indication: Product used for unknown indication
     Dosage: 1 DF, QD
  244. CALCIUM\CHOLECALCIFEROL [Suspect]
     Active Substance: CALCIUM\CHOLECALCIFEROL
     Indication: Mineral supplementation
     Dosage: 1 DOSAGE FORMS,1 IN 1 D
  245. CALCIUM\CHOLECALCIFEROL [Suspect]
     Active Substance: CALCIUM\CHOLECALCIFEROL
     Dosage: UNK UNK, QD
  246. CALCIUM\CHOLECALCIFEROL [Suspect]
     Active Substance: CALCIUM\CHOLECALCIFEROL
     Dosage: 8 DF, QD
  247. CALCIUM\CHOLECALCIFEROL [Suspect]
     Active Substance: CALCIUM\CHOLECALCIFEROL
     Dosage: 2 DF, QD
  248. CALCIUM PHOSPHATE [Suspect]
     Active Substance: CALCIUM PHOSPHATE
     Indication: Mineral supplementation
     Dosage: UNK
  249. CALCIUM PHOSPHATE [Suspect]
     Active Substance: CALCIUM PHOSPHATE
     Dosage: 2 DOSAGE FORM
  250. CALCIUM PHOSPHATE [Suspect]
     Active Substance: CALCIUM PHOSPHATE
     Dosage: 8 DF, QD
  251. CALCIUM PHOSPHATE [Suspect]
     Active Substance: CALCIUM PHOSPHATE
     Dosage: UNK
  252. CALCIUM PHOSPHATE [Suspect]
     Active Substance: CALCIUM PHOSPHATE
     Dosage: 8 DF
     Route: 065
  253. CALCIUM PHOSPHATE [Suspect]
     Active Substance: CALCIUM PHOSPHATE
     Dosage: 1 DOSAGE FORMS,1 IN 1 D
  254. CALCIUM PHOSPHATE [Suspect]
     Active Substance: CALCIUM PHOSPHATE
     Dosage: UNK, QD
  255. CUPRIC SULFATE ANHYDROUS [Suspect]
     Active Substance: CUPRIC SULFATE ANHYDROUS
     Indication: Product used for unknown indication
     Dosage: 1 DOSAGE FORMS,1 IN 1 D
  256. CUPRIC SULFATE ANHYDROUS [Suspect]
     Active Substance: CUPRIC SULFATE ANHYDROUS
     Dosage: 1 DF, QD
     Route: 065
  257. CYANOCOBALAMIN [Suspect]
     Active Substance: CYANOCOBALAMIN
     Indication: Product used for unknown indication
     Dosage: 1 DF, QD
     Route: 065
  258. ERGOCALCIFEROL [Suspect]
     Active Substance: ERGOCALCIFEROL
     Indication: Product used for unknown indication
     Dosage: 1 DF, QD
     Route: 065
  259. ERGOCALCIFEROL [Suspect]
     Active Substance: ERGOCALCIFEROL
     Dosage: 2 UNK
     Route: 065
  260. ERGOCALCIFEROL [Suspect]
     Active Substance: ERGOCALCIFEROL
     Dosage: UNK
  261. FERROUS SULFATE [Suspect]
     Active Substance: FERROUS SULFATE
     Indication: Product used for unknown indication
     Dosage: 1 DOSAGE FORM
  262. FOLIC ACID [Suspect]
     Active Substance: FOLIC ACID
     Indication: Product used for unknown indication
     Dosage: 1 DOSAGE FORM
     Route: 065
  263. SODIUM POLYMETAPHOSPHATE [Suspect]
     Active Substance: SODIUM POLYMETAPHOSPHATE
     Indication: Product used for unknown indication
     Dosage: UNK
  264. ASCORBIC ACID [Suspect]
     Active Substance: ASCORBIC ACID
     Indication: Product used for unknown indication
     Dosage: 1 DF, QD
  265. BIOTIN [Suspect]
     Active Substance: BIOTIN
     Dosage: 3 DOSAGE FORM
  266. DOMPERIDONE MALEATE [Suspect]
     Active Substance: DOMPERIDONE MALEATE
     Dosage: UNK
     Route: 065
  267. ACETAMINOPHEN [Suspect]
     Active Substance: ACETAMINOPHEN
  268. CODEINE PHOSPHATE [Suspect]
     Active Substance: CODEINE PHOSPHATE
     Route: 065
  269. POTASSIUM CHLORIDE [Suspect]
     Active Substance: POTASSIUM CHLORIDE
     Dosage: 1 DOSAGE FORM
  270. CALCIUM CARBONATE\CHOLECALCIFEROL [Suspect]
     Active Substance: CALCIUM CARBONATE\CHOLECALCIFEROL
     Indication: Mineral supplementation
     Dosage: UNK
  271. CALCIUM CARBONATE\CHOLECALCIFEROL [Suspect]
     Active Substance: CALCIUM CARBONATE\CHOLECALCIFEROL
     Dosage: 2 DOSAGE FORM, QD
  272. CALCIUM CARBONATE\CHOLECALCIFEROL [Suspect]
     Active Substance: CALCIUM CARBONATE\CHOLECALCIFEROL
     Dosage: 2 DOSAGE FORM
     Route: 048
  273. CALCIUM CARBONATE\CHOLECALCIFEROL [Suspect]
     Active Substance: CALCIUM CARBONATE\CHOLECALCIFEROL
     Dosage: 2 DOSAGE FORM, QD
  274. CALCIUM CARBONATE\CHOLECALCIFEROL [Suspect]
     Active Substance: CALCIUM CARBONATE\CHOLECALCIFEROL
     Dosage: UNK, QD
  275. CALCIUM CARBONATE\CHOLECALCIFEROL [Suspect]
     Active Substance: CALCIUM CARBONATE\CHOLECALCIFEROL
     Dosage: 1 DOSAGE FORM
  276. CALCIUM CARBONATE\CHOLECALCIFEROL [Suspect]
     Active Substance: CALCIUM CARBONATE\CHOLECALCIFEROL
     Dosage: 2 DOSAGE FORM, QD
  277. CALCIUM CARBONATE\CHOLECALCIFEROL [Suspect]
     Active Substance: CALCIUM CARBONATE\CHOLECALCIFEROL
     Dosage: 1 DOSAGE FORM, QD
  278. CALCIUM CARBONATE\CHOLECALCIFEROL [Suspect]
     Active Substance: CALCIUM CARBONATE\CHOLECALCIFEROL
     Dosage: 1 DOSAGE FORM, QD
  279. CALCIUM CARBONATE\CHOLECALCIFEROL [Suspect]
     Active Substance: CALCIUM CARBONATE\CHOLECALCIFEROL
     Dosage: 2 DOSAGE FORM
  280. CALCIUM CARBONATE\CHOLECALCIFEROL [Suspect]
     Active Substance: CALCIUM CARBONATE\CHOLECALCIFEROL
     Dosage: UNK, QD
  281. CALCIUM CARBONATE\CHOLECALCIFEROL [Suspect]
     Active Substance: CALCIUM CARBONATE\CHOLECALCIFEROL
     Dosage: 1 DOSAGE FORM, QD
  282. CALCIUM CARBONATE\CHOLECALCIFEROL [Suspect]
     Active Substance: CALCIUM CARBONATE\CHOLECALCIFEROL
     Dosage: UNK, QD
  283. CALCIUM CARBONATE [Suspect]
     Active Substance: CALCIUM CARBONATE
     Dosage: 1 DOSAGE FORM, QD
     Route: 065

REACTIONS (9)
  - Neck pain [Unknown]
  - Vitamin B12 deficiency [Unknown]
  - Oropharyngeal discomfort [Unknown]
  - Abdominal distension [Unknown]
  - Barrett^s oesophagus [Unknown]
  - Hypersensitivity [Recovered/Resolved]
  - Dyspepsia [Unknown]
  - Regurgitation [Unknown]
  - Eructation [Unknown]

NARRATIVE: CASE EVENT DATE: 20200825
